FAERS Safety Report 5888479-X (Version None)
Quarter: 2008Q3

REPORT INFORMATION
  Report Type: 
  Country: None (occurrence: None)
  Receive Date: 20080918
  Receipt Date: 20080905
  Transmission Date: 20090109
  Serious: Yes (Other)
  Sender: FDA-Public Use
  Company Number: US-ELI_LILLY_AND_COMPANY-US200809001280

PATIENT
  Age: 41 Year
  Sex: Female

DRUGS (2)
  1. CYMBALTA [Suspect]
     Indication: FIBROMYALGIA
     Dosage: 30 MG, DAILY (1/D)
     Dates: start: 20080827
  2. IBUPROFEN [Concomitant]

REACTIONS (5)
  - LOSS OF CONSCIOUSNESS [None]
  - OEDEMA MOUTH [None]
  - SENSITIVITY OF TEETH [None]
  - SYNCOPE [None]
  - TOOTH FRACTURE [None]
